FAERS Safety Report 20094590 (Version 1)
Quarter: 2021Q4

REPORT INFORMATION
  Report Type: Spontaneous
  Country: CN (occurrence: CN)
  Receive Date: 20211122
  Receipt Date: 20211122
  Transmission Date: 20220303
  Serious: Yes (Other)
  Sender: FDA-Public Use
  Company Number: None

PATIENT
  Age: 28 Year
  Sex: Male
  Weight: 66 kg

DRUGS (3)
  1. OLANZAPINE [Suspect]
     Active Substance: OLANZAPINE
     Indication: Psychotic symptom
     Dosage: 10.00000MG,BID
     Route: 048
     Dates: start: 20211002
  2. OLANZAPINE [Suspect]
     Active Substance: OLANZAPINE
     Dosage: OLANZAPINE WAS REDUCED TO 5 MG TWICE DAILY
     Route: 048
     Dates: start: 20211112, end: 20211115
  3. Renao [Concomitant]
     Indication: Epilepsy
     Dosage: 0.900000G,BID
     Route: 048
     Dates: start: 20211002, end: 20211115

REACTIONS (1)
  - Arrhythmia [Unknown]

NARRATIVE: CASE EVENT DATE: 20211029
